FAERS Safety Report 4357252-6 (Version None)
Quarter: 2004Q2

REPORT INFORMATION
  Report Type: 
  Country: None (occurrence: None)
  Receive Date: 20040507
  Receipt Date: 20040421
  Transmission Date: 20050107
  Serious: Yes (Death)
  Sender: FDA-Public Use
  Company Number: USA040465484

PATIENT
  Age: 88 Year
  Sex: Male

DRUGS (7)
  1. GEMZAR [Suspect]
     Indication: BILE DUCT CANCER STAGE IV
     Dates: start: 20040310
  2. GEMZAR [Suspect]
     Indication: PANCREATIC CARCINOMA
     Dates: start: 20040310
  3. LASIX [Concomitant]
  4. ALTACE [Concomitant]
  5. ASPIRIN [Concomitant]
  6. SPIRONOLACTONE [Concomitant]
  7. ATENOLOL [Concomitant]

REACTIONS (2)
  - MYOCARDIAL INFARCTION [None]
  - NAUSEA [None]
